FAERS Safety Report 8446546-0 (Version None)
Quarter: 2012Q2

REPORT INFORMATION
  Report Type: 
  Country: None (occurrence: None)
  Receive Date: 20120618
  Receipt Date: 20120610
  Transmission Date: 20120825
  Serious: Yes (Life-Threatening, Hospitalization)
  Sender: FDA-Public Use
  Company Number: AE-ELI_LILLY_AND_COMPANY-AE201206004185

PATIENT
  Age: 68 Year
  Sex: Female

DRUGS (4)
  1. ASPIRIN [Concomitant]
     Indication: PROPHYLAXIS
     Dosage: 100 MG, UNKNOWN
  2. BYDUREON [Suspect]
     Indication: DIABETES MELLITUS
     Dosage: 2 MG, UNKNOWN
     Dates: start: 20120401
  3. CRESTOR [Concomitant]
     Indication: DYSLIPIDAEMIA
     Dosage: 10 MG, UNKNOWN
  4. NOVONORM [Concomitant]
     Indication: DIABETES MELLITUS
     Dosage: 2 MG, TID

REACTIONS (1)
  - HYPOVOLAEMIC SHOCK [None]
